FAERS Safety Report 25597431 (Version 1)
Quarter: 2025Q3

REPORT INFORMATION
  Report Type: Spontaneous
  Country: US (occurrence: US)
  Receive Date: 20250723
  Receipt Date: 20250723
  Transmission Date: 20251021
  Serious: Yes (Other)
  Sender: NOVARTIS
  Company Number: US-002147023-NVSC2025US115211

PATIENT
  Age: 38 Year
  Sex: Female

DRUGS (2)
  1. EVEROLIMUS [Suspect]
     Active Substance: EVEROLIMUS
     Indication: Meningioma
     Route: 065
     Dates: start: 202008, end: 202011
  2. BEVACIZUMAB [Suspect]
     Active Substance: BEVACIZUMAB
     Indication: Meningioma
     Route: 065
     Dates: start: 202008, end: 202011

REACTIONS (6)
  - Meningioma [Unknown]
  - Disease progression [Unknown]
  - Hemiparesis [Unknown]
  - Visual acuity reduced [Unknown]
  - Treatment failure [Unknown]
  - Off label use [Unknown]

NARRATIVE: CASE EVENT DATE: 20200101
